FAERS Safety Report 25071683 (Version 2)
Quarter: 2025Q1

REPORT INFORMATION
  Report Type: Spontaneous
  Country: US (occurrence: US)
  Receive Date: 20250313
  Receipt Date: 20250315
  Transmission Date: 20250409
  Serious: Yes (Life-Threatening, Hospitalization, Other)
  Sender: CELLTRION
  Company Number: US-CELLTRION INC.-2025US007192

PATIENT

DRUGS (8)
  1. INFLIXIMAB [Suspect]
     Active Substance: INFLIXIMAB
     Indication: Crohn^s disease
     Dates: start: 201605
  2. INFLIXIMAB [Suspect]
     Active Substance: INFLIXIMAB
  3. INFLIXIMAB [Suspect]
     Active Substance: INFLIXIMAB
  4. INFLIXIMAB [Suspect]
     Active Substance: INFLIXIMAB
  5. INFLIXIMAB [Suspect]
     Active Substance: INFLIXIMAB
  6. INFLIXIMAB [Suspect]
     Active Substance: INFLIXIMAB
  7. FLUOXETINE [Concomitant]
     Active Substance: FLUOXETINE HYDROCHLORIDE
  8. RISPERIDONE [Concomitant]
     Active Substance: RISPERIDONE

REACTIONS (3)
  - Depression [Recovering/Resolving]
  - Suicide attempt [Recovering/Resolving]
  - Hypersensitivity [Unknown]
